FAERS Safety Report 9763555 (Version 1)
Quarter: 2013Q4

REPORT INFORMATION
  Report Type: Spontaneous
  Country: FR (occurrence: FR)
  Receive Date: 20131216
  Receipt Date: 20131216
  Transmission Date: 20140711
  Serious: Yes (Life-Threatening)
  Sender: FDA-Public Use
  Company Number: PHHY2013FR145109

PATIENT
  Age: 72 Year
  Sex: Female

DRUGS (13)
  1. LOXEN LP [Suspect]
     Indication: HYPERTENSION
     Dosage: 50 MG, BID
     Route: 048
  2. REPAGLINIDE [Suspect]
     Indication: TYPE 2 DIABETES MELLITUS
     Dosage: 2 MG, TID
     Route: 048
  3. CELIPROLOL [Suspect]
     Indication: HYPERTENSION
     Dosage: 200 MG, BID
     Route: 048
  4. ALLOPURINOL [Suspect]
     Dosage: 200 MG, QD
     Route: 048
  5. OMEPRAZOLE [Suspect]
     Dosage: UNK UKN, UNK
     Route: 048
  6. METFORMIN [Suspect]
     Indication: TYPE 2 DIABETES MELLITUS
     Dosage: 1000 MG, QD
     Route: 048
  7. JANUMET [Suspect]
     Indication: TYPE 2 DIABETES MELLITUS
     Dosage: 1 DF, BID (1000 MG METF, 50 MG SITA)
     Route: 048
     Dates: start: 20130622
  8. DIFFU K [Suspect]
     Dosage: 600 MG, BID
     Route: 048
  9. LASILIX [Suspect]
     Dosage: UNK UKN, UNK
     Route: 048
  10. LEVOTHYROX [Suspect]
     Indication: HYPOTHYROIDISM
     Dosage: 25 UG, QD
     Route: 048
  11. TARDYFERON B(9) [Suspect]
     Dosage: BID
     Route: 048
  12. DAFALGAN [Suspect]
     Dosage: 4 G, QD
     Route: 048
  13. STILNOX [Suspect]
     Dosage: 10 MG, QD
     Route: 048

REACTIONS (2)
  - Pancreatic carcinoma metastatic [Not Recovered/Not Resolved]
  - Abdominal pain upper [Unknown]
